FAERS Safety Report 10273095 (Version 1)
Quarter: 2014Q2

REPORT INFORMATION
  Report Type: Spontaneous
  Country: KR (occurrence: None)
  Receive Date: 20140630
  Receipt Date: 20140630
  Transmission Date: 20141212
  Serious: Yes (Other)
  Sender: FDA-Public Use
  Company Number: SYM-2014-22460

PATIENT
  Age: 52 Year
  Sex: Male

DRUGS (3)
  1. FLUOROURACIL (FLUOROURACIL) [Suspect]
     Indication: GASTROINTESTINAL CARCINOMA
  2. OXALIPLATIN (OXALIPLATIN) [Suspect]
     Indication: GASTROINTESTINAL CARCINOMA
  3. FOLINIC ACID [Suspect]
     Indication: GASTROINTESTINAL CARCINOMA

REACTIONS (1)
  - Liver disorder [None]
